FAERS Safety Report 17250992 (Version 1)
Quarter: 2020Q1

REPORT INFORMATION
  Report Type: Spontaneous
  Country: NL (occurrence: NL)
  Receive Date: 20200109
  Receipt Date: 20200109
  Transmission Date: 20200409
  Serious: Yes (Hospitalization)
  Sender: FDA-Public Use
  Company Number: NL-TEVA-2020-NL-1164404

PATIENT
  Age: 69 Year
  Sex: Female
  Weight: 64 kg

DRUGS (5)
  1. HALOPERIDOL. [Concomitant]
     Active Substance: HALOPERIDOL
  2. CEFAZOLINE [CEFAZOLIN] [Suspect]
     Active Substance: CEFAZOLIN
     Indication: CELLULITIS
     Dosage: 500MG 3DD (EVERY 8 HOURS)
     Dates: start: 20191127, end: 20191129
  3. DOXYCYCLINE TABLET, 100 MG (MILLIGRAM) [Suspect]
     Active Substance: DOXYCYCLINE
     Indication: CELLULITIS
     Dosage: 1DD 100MG
     Dates: start: 20191122, end: 20191125
  4. LEVOFLOXACINE OMHULDE TABLET, 250 MG (MILLIGRAM) [Suspect]
     Active Substance: LEVOFLOXACIN
     Indication: CELLULITIS
     Dosage: 2DD 1 (250MG PER DAY)
     Dates: start: 20191125, end: 20191127
  5. CLARITROMYCINE TABLET, 500 MG (MILLIGRAM) [Suspect]
     Active Substance: CLARITHROMYCIN
     Indication: CELLULITIS
     Dosage: 1DD 1 (500MG PER DAY)
     Dates: start: 20191119, end: 20191122

REACTIONS (4)
  - Erythema [Recovering/Resolving]
  - Rash maculo-papular [Recovering/Resolving]
  - Toxic skin eruption [Recovering/Resolving]
  - Oedema [Recovering/Resolving]

NARRATIVE: CASE EVENT DATE: 20191129
